FAERS Safety Report 6966530-3 (Version None)
Quarter: 2010Q3

REPORT INFORMATION
  Report Type: 
  Country: None (occurrence: None)
  Receive Date: 20100906
  Receipt Date: 20100830
  Transmission Date: 20110219
  Serious: Yes (Hospitalization)
  Sender: FDA-Public Use
  Company Number: US-BIOGENIDEC-2008BI032078

PATIENT
  Age: 55 Year
  Sex: Female
  Weight: 104 kg

DRUGS (3)
  1. TYSABRI [Suspect]
     Indication: MULTIPLE SCLEROSIS
     Route: 042
     Dates: start: 20080910
  2. AVELOX [Concomitant]
  3. PREDNISONE [Concomitant]

REACTIONS (7)
  - ASTHENIA [None]
  - EPISTAXIS [None]
  - HYPERTENSION [None]
  - HYPOCHONDRIASIS [None]
  - PAIN [None]
  - VISUAL IMPAIRMENT [None]
  - WEIGHT INCREASED [None]
